FAERS Safety Report 5615260-9 (Version None)
Quarter: 2008Q1

REPORT INFORMATION
  Report Type: 
  Country: None (occurrence: None)
  Receive Date: 20080201
  Receipt Date: 20080123
  Transmission Date: 20080703
  Serious: Yes (Hospitalization)
  Sender: FDA-Public Use
  Company Number: 2008-00017

PATIENT
  Age: 1 Year
  Sex: Male
  Weight: 75.2 kg

DRUGS (4)
  1. VELCADE [Suspect]
     Indication: ACUTE LYMPHOCYTIC LEUKAEMIA
     Dosage: 1.00 MG/M2, INTRAVENOUS
     Route: 042
     Dates: start: 20071217, end: 20071230
  2. ZAMESTRA (TIPIFARNIB) TABLET, 100MG [Suspect]
     Indication: ACUTE LYMPHOCYTIC LEUKAEMIA
     Dosage: 400.00 MG, ORAL
     Route: 048
     Dates: start: 20071217, end: 20071227
  3. LEVAQUINN (LEVOFLOXACIN) [Concomitant]
  4. NEUPOGEN [Concomitant]

REACTIONS (4)
  - CELLULITIS [None]
  - CHEST PAIN [None]
  - DYSPNOEA [None]
  - STAPHYLOCOCCAL INFECTION [None]
